FAERS Safety Report 8981824 (Version 1)
Quarter: 2012Q4

REPORT INFORMATION
  Report Type: 
  Country: US (occurrence: US)
  Receive Date: 20121212
  Receipt Date: 20121212
  Transmission Date: 20130627
  Serious: Yes (Death)
  Sender: FDA-Public Use
  Company Number: US-ASTELLAS-1116526

PATIENT
  Sex: Female

DRUGS (2)
  1. TARCEVA [Suspect]
     Indication: NON-SMALL CELL LUNG CANCER
     Route: 048
     Dates: start: 20050715, end: 20060126
  2. TARCEVA [Suspect]
     Indication: MALIGNANT RESPIRATORY TRACT NEOPLASM

REACTIONS (4)
  - Diarrhoea [Unknown]
  - Rash [Unknown]
  - Rash [Unknown]
  - Disease progression [Fatal]
